FAERS Safety Report 9937144 (Version 1)
Quarter: 2014Q1

REPORT INFORMATION
  Report Type: Spontaneous
  Country: HK (occurrence: HK)
  Receive Date: 20140301
  Receipt Date: 20140301
  Transmission Date: 20141002
  Serious: Yes (Other)
  Sender: FDA-Public Use
  Company Number: PHHY2014HK021038

PATIENT
  Age: 29 Year
  Sex: Female

DRUGS (2)
  1. WARFARIN [Suspect]
  2. HEPARIN [Suspect]
     Route: 041

REACTIONS (9)
  - Splenic rupture [Recovering/Resolving]
  - Splenic haemorrhage [Recovering/Resolving]
  - Peritoneal haemorrhage [Recovering/Resolving]
  - Abdominal pain upper [Recovering/Resolving]
  - Back pain [Recovering/Resolving]
  - Abdominal distension [Recovering/Resolving]
  - Acute abdomen [Recovering/Resolving]
  - Abdominal tenderness [Recovering/Resolving]
  - Maternal exposure during pregnancy [Unknown]
